FAERS Safety Report 8192778-9 (Version None)
Quarter: 2012Q1

REPORT INFORMATION
  Report Type: 
  Country: None (occurrence: None)
  Receive Date: 20120308
  Receipt Date: 20120305
  Transmission Date: 20120608
  Serious: No
  Sender: FDA-Public Use
  Company Number: US-PFIZER INC-2012021190

PATIENT
  Sex: Female

DRUGS (5)
  1. MOTRIN [Concomitant]
     Dosage: UNK
  2. IMITREX [Concomitant]
     Dosage: UNK
  3. GENOTROPIN [Suspect]
     Indication: BODY HEIGHT BELOW NORMAL
  4. GENOTROPIN [Suspect]
     Indication: GROWTH HORMONE DEFICIENCY
     Dosage: 1.7 MG, DAILY
     Route: 058
     Dates: start: 20120104
  5. ESGIC [Concomitant]
     Dosage: UNK

REACTIONS (1)
  - HEADACHE [None]
